FAERS Safety Report 9064024 (Version 1)
Quarter: 2013Q1

REPORT INFORMATION
  Report Type: Spontaneous
  Country: AE (occurrence: AE)
  Receive Date: 20130213
  Receipt Date: 20130213
  Transmission Date: 20140127
  Serious: Yes (Life-Threatening, Hospitalization, Other)
  Sender: FDA-Public Use
  Company Number: AE-ROCHE-1189900

PATIENT
  Age: 32 None
  Sex: Male

DRUGS (1)
  1. XOLAIR [Suspect]
     Indication: URTICARIA
     Route: 065
     Dates: start: 20130205

REACTIONS (1)
  - Anaphylactic reaction [Recovered/Resolved]
